FAERS Safety Report 10209494 (Version 2)
Quarter: 2014Q3

REPORT INFORMATION
  Report Type: Report from Study
  Country: BR (occurrence: BR)
  Receive Date: 20140601
  Receipt Date: 20140707
  Transmission Date: 20150326
  Serious: Yes (Hospitalization, Other)
  Sender: FDA-Public Use
  Company Number: PHHY2014BR063697

PATIENT
  Sex: Female
  Weight: 74 kg

DRUGS (15)
  1. PAMELOR [Suspect]
     Active Substance: NORTRIPTYLINE HYDROCHLORIDE
     Indication: EPILEPSY
     Dosage: 1 DF, QD, IN THE MORNING
     Route: 048
  2. MAREVAN [Concomitant]
     Active Substance: WARFARIN SODIUM
     Indication: ANTICOAGULANT THERAPY
     Dosage: UNK UKN, UNK (5 MG)
     Dates: start: 2011
  3. HIGROTON [Suspect]
     Active Substance: CHLORTHALIDONE
     Indication: DIURETIC THERAPY
  4. GLIFAGE [Concomitant]
     Active Substance: METFORMIN HYDROCHLORIDE
     Indication: DIABETES MELLITUS
     Dosage: UNK UKN, UNK
     Dates: start: 201312
  5. ADDERA D3 [Concomitant]
     Active Substance: CHOLECALCIFEROL
     Dosage: UNK UKN, UNK (7000 UNITS)
  6. TEGRETOL [Suspect]
     Active Substance: CARBAMAZEPINE
     Indication: BACK PAIN
  7. TEGRETOL [Suspect]
     Active Substance: CARBAMAZEPINE
     Indication: OFF LABEL USE
  8. HIGROTON [Suspect]
     Active Substance: CHLORTHALIDONE
     Indication: LOCAL SWELLING
     Dosage: UNK UNK, QD (ONCE IN MORNING)
     Route: 048
  9. MAREVAN [Concomitant]
     Active Substance: WARFARIN SODIUM
     Dosage: UNK UKN, UNK (3.75 MG)
     Dates: start: 2011
  10. TEGRETOL [Suspect]
     Active Substance: CARBAMAZEPINE
     Indication: EPILEPSY
     Dosage: UNK UNK, QD
     Route: 048
  11. PAMELOR [Suspect]
     Active Substance: NORTRIPTYLINE HYDROCHLORIDE
     Indication: OFF LABEL USE
  12. ADDERA D3 [Concomitant]
     Active Substance: CHOLECALCIFEROL
     Dosage: 3200 UNITS UKN, UNK
  13. ADDERA D3 [Concomitant]
     Active Substance: CHOLECALCIFEROL
     Dosage: UNK UKN, 7000 UNITS QW
  14. GARDENAL ^AVENTIS^ [Concomitant]
     Active Substance: PHENOBARBITAL
     Indication: EPILEPSY
     Dosage: UNK UKN, UNK
  15. TEGRETOL [Suspect]
     Active Substance: CARBAMAZEPINE
     Dosage: UNK UKN, UNK

REACTIONS (4)
  - Coagulation test abnormal [Recovering/Resolving]
  - Anaemia [Recovering/Resolving]
  - Vision blurred [Recovering/Resolving]
  - Gastric disorder [Recovering/Resolving]
